FAERS Safety Report 7380671 (Version 1)
Quarter: 2020Q3

REPORT INFORMATION
  Report Type: Report from Study
  Country: US (occurrence: US)
  Receive Date: 20100507
  Receipt Date: 20100507
  Transmission Date: 20201104
  Serious: Yes (Other)
  Sender: FDA-Public Use
  Company Number: US-ROCHE-690515

PATIENT
  Sex: Female

DRUGS (1)
  1. IBANDRONIC ACID. [Suspect]
     Active Substance: IBANDRONIC ACID
     Indication: OSTEOPOROSIS POSTMENOPAUSAL
     Route: 065

REACTIONS (8)
  - Asthma [Unknown]
  - Abdominal pain upper [Unknown]
  - Vomiting [Unknown]
  - Hip fracture [Unknown]
  - Painful respiration [Unknown]
  - Dizziness [Unknown]
  - Chest pain [Unknown]
  - Tinnitus [Unknown]
